FAERS Safety Report 26004368 (Version 2)
Quarter: 2025Q4

REPORT INFORMATION
  Report Type: Report from Study
  Country: US (occurrence: US)
  Receive Date: 20251106
  Receipt Date: 20251229
  Transmission Date: 20260117
  Serious: Yes (Hospitalization, Other)
  Sender: BOEHRINGER INGELHEIM
  Company Number: US-BoehringerIngelheim-2024-BI-050611

PATIENT
  Age: 93 Year
  Sex: Male

DRUGS (3)
  1. OFEV [Suspect]
     Active Substance: NINTEDANIB
     Indication: Idiopathic pulmonary fibrosis
  2. OFEV [Suspect]
     Active Substance: NINTEDANIB
  3. OFEV [Suspect]
     Active Substance: NINTEDANIB
     Dosage: 402601B
     Dates: start: 20250829

REACTIONS (14)
  - Pulmonary thrombosis [Unknown]
  - Pulmonary haemorrhage [Unknown]
  - Peripheral swelling [Unknown]
  - Weight decreased [Unknown]
  - Rhinorrhoea [Unknown]
  - Constipation [Not Recovered/Not Resolved]
  - Pain in extremity [Unknown]
  - Nausea [Unknown]
  - Productive cough [Unknown]
  - Drug ineffective [Unknown]
  - Dizziness [Unknown]
  - Syncope [Unknown]
  - Faecal disimpaction [Unknown]
  - Fatigue [Unknown]

NARRATIVE: CASE EVENT DATE: 20240801
